FAERS Safety Report 22138027 (Version 1)
Quarter: 2023Q1

REPORT INFORMATION
  Report Type: Spontaneous
  Country: CA (occurrence: CA)
  Receive Date: 20230325
  Receipt Date: 20230325
  Transmission Date: 20230417
  Serious: Yes (Other)
  Sender: FDA-Public Use
  Company Number: None

PATIENT

DRUGS (1)
  1. TOPOTECAN [Suspect]
     Active Substance: TOPOTECAN HYDROCHLORIDE
     Indication: Retinoblastoma
     Route: 031

REACTIONS (9)
  - Macular hole [Unknown]
  - Off label use [Unknown]
  - Optic atrophy [Unknown]
  - Product administration error [Unknown]
  - Product use issue [Unknown]
  - Retinal detachment [Unknown]
  - Retinal haemorrhage [Unknown]
  - Retinal vascular disorder [Unknown]
  - Vitritis [Unknown]
